FAERS Safety Report 14201965 (Version 10)
Quarter: 2019Q1

REPORT INFORMATION
  Report Type: Report from Study
  Country: AT (occurrence: AT)
  Receive Date: 20171117
  Receipt Date: 20190313
  Transmission Date: 20190417
  Serious: Yes (Death, Hospitalization, Other)
  Sender: FDA-Public Use
  Company Number: AT-INCYTE CORPORATION-2014IN002751

PATIENT

DRUGS (7)
  1. JAKAVI [Suspect]
     Active Substance: RUXOLITINIB
     Dosage: 5 MG, QOD
     Route: 048
     Dates: start: 20170427, end: 20170519
  2. INTRATECT [Concomitant]
     Active Substance: HUMAN IMMUNOGLOBULIN G
     Dosage: UNK
     Route: 065
  3. JAKAVI [Suspect]
     Active Substance: RUXOLITINIB
     Dosage: 5 MG, BID
     Route: 048
     Dates: start: 20141111, end: 20141202
  4. JAKAVI [Suspect]
     Active Substance: RUXOLITINIB
     Indication: MYELOFIBROSIS
     Dosage: 10 MG, BID
     Route: 048
     Dates: start: 20120309, end: 20141110
  5. JAKAVI [Suspect]
     Active Substance: RUXOLITINIB
     Dosage: 5 MG, QD
     Route: 048
     Dates: start: 20141203, end: 20150301
  6. JAKAVI [Suspect]
     Active Substance: RUXOLITINIB
     Dosage: 5 MG, BID
     Route: 048
     Dates: start: 20150302
  7. INTRATECT [Concomitant]
     Active Substance: HUMAN IMMUNOGLOBULIN G
     Indication: PRODUCT USED FOR UNKNOWN INDICATION
     Dosage: UNK
     Route: 065

REACTIONS (40)
  - Ulcer [Recovered/Resolved]
  - Respiratory syncytial virus infection [Recovered/Resolved]
  - Sleep disorder [Not Recovered/Not Resolved]
  - Haematoma [Recovered/Resolved]
  - Constipation [Unknown]
  - Pulmonary arterial hypertension [Unknown]
  - Thrombocytopenia [Recovered/Resolved]
  - Cough [Recovered/Resolved]
  - Oedema peripheral [Recovered/Resolved]
  - Blood creatinine increased [Recovered/Resolved]
  - General physical health deterioration [Recovered/Resolved]
  - Respiratory tract infection [Recovered/Resolved]
  - Respiratory tract infection [Recovered/Resolved]
  - Vomiting [Unknown]
  - Folate deficiency [Recovered/Resolved]
  - General physical health deterioration [Not Recovered/Not Resolved]
  - General physical health deterioration [Fatal]
  - Tongue ulceration [Recovered/Resolved]
  - Pupils unequal [Unknown]
  - Nasopharyngitis [Recovered/Resolved]
  - Mucosal inflammation [Recovered/Resolved]
  - Respiratory tract infection [Recovered/Resolved]
  - Dementia [Recovered/Resolved]
  - Cholelithiasis [Unknown]
  - Abdominal pain upper [Not Recovered/Not Resolved]
  - Hypocalcaemia [Recovered/Resolved]
  - Hepatosplenomegaly [Not Recovered/Not Resolved]
  - Concomitant disease aggravated [Unknown]
  - Agitation [Recovered/Resolved]
  - Anaemia [Recovered/Resolved]
  - Intention tremor [Recovered/Resolved]
  - Stomatitis [Recovered/Resolved]
  - General physical health deterioration [Recovered/Resolved]
  - Dyspnoea [Recovered/Resolved]
  - Hyperkalaemia [Recovered/Resolved]
  - Iron overload [Recovered/Resolved]
  - Muscle spasms [Recovered/Resolved]
  - Faeces discoloured [Recovered/Resolved]
  - Thrombocytopenia [Recovering/Resolving]
  - Thrombocytopenia [Recovered/Resolved]

NARRATIVE: CASE EVENT DATE: 20131022
